FAERS Safety Report 5321089-1 (Version None)
Quarter: 2007Q2

REPORT INFORMATION
  Report Type: 
  Country: None (occurrence: None)
  Receive Date: 20070215
  Receipt Date: 20061206
  Transmission Date: 20071010
  Serious: No
  Sender: FDA-Public Use
  Company Number: 200616830BWH

PATIENT
  Age: 81 Year
  Sex: Male

DRUGS (5)
  1. NEXAVAR [Suspect]
     Indication: METASTATIC RENAL CELL CARCINOMA
     Dosage: SEE IMAGE
     Route: 048
     Dates: start: 20061122, end: 20061205
  2. NEXAVAR [Suspect]
     Indication: METASTATIC RENAL CELL CARCINOMA
     Dosage: SEE IMAGE
     Route: 048
     Dates: start: 20061206
  3. NORVASC [Concomitant]
  4. FERROUS SUL TAB [Concomitant]
  5. POLYETHYLENE GLYCOL [Concomitant]

REACTIONS (1)
  - RASH ERYTHEMATOUS [None]
